FAERS Safety Report 11159694 (Version 2)
Quarter: 2015Q3

REPORT INFORMATION
  Report Type: Spontaneous
  Country: US (occurrence: US)
  Receive Date: 20150603
  Receipt Date: 20150812
  Transmission Date: 20151125
  Serious: Yes (Hospitalization, Other)
  Sender: FDA-Public Use
  Company Number: US-ASTRAZENECA-2015SE45770

PATIENT
  Age: 882 Month
  Sex: Female
  Weight: 63.5 kg

DRUGS (19)
  1. TENORMIN [Suspect]
     Active Substance: ATENOLOL
     Indication: HEART RATE IRREGULAR
     Dosage: 50 MG BID, STARTED 35 YEARS AGO
     Route: 048
  2. VITAMIN D3 [Concomitant]
     Active Substance: CHOLECALCIFEROL
  3. TENORMIN [Suspect]
     Active Substance: ATENOLOL
     Indication: HEART RATE IRREGULAR
     Route: 048
     Dates: start: 2005, end: 20150211
  4. TENORMIN [Suspect]
     Active Substance: ATENOLOL
     Indication: HYPERTENSION
     Dosage: TEVA
     Route: 048
     Dates: start: 20150212
  5. OMEGA 3 [Concomitant]
     Active Substance: OMEGA-3 FATTY ACIDS
     Indication: SUPPLEMENTATION THERAPY
  6. ACIDS [Concomitant]
  7. TENORMIN [Suspect]
     Active Substance: ATENOLOL
     Indication: HEART RATE IRREGULAR
     Route: 048
     Dates: start: 20150226
  8. TENORMIN [Suspect]
     Active Substance: ATENOLOL
     Indication: HYPERTENSION
     Route: 048
     Dates: start: 20150226
  9. ASPIRIN. [Concomitant]
     Active Substance: ASPIRIN
  10. MULTIVITAMIN [Concomitant]
     Active Substance: VITAMINS
     Indication: VITAMIN SUPPLEMENTATION
  11. TENORMIN [Suspect]
     Active Substance: ATENOLOL
     Indication: HYPERTENSION
     Dosage: 50 MG BID, STARTED 35 YEARS AGO
     Route: 048
  12. ZESTRIL [Suspect]
     Active Substance: LISINOPRIL
     Indication: BLOOD PRESSURE MEASUREMENT
     Route: 048
  13. TENORMIN [Suspect]
     Active Substance: ATENOLOL
     Indication: HYPERTENSION
     Route: 048
     Dates: start: 2005, end: 20150211
  14. TENORMIN [Suspect]
     Active Substance: ATENOLOL
     Indication: HEART RATE IRREGULAR
     Dosage: TEVA
     Route: 048
     Dates: start: 20150212
  15. TENORMIN [Suspect]
     Active Substance: ATENOLOL
     Indication: HYPERTENSION
     Route: 048
  16. TENORMIN [Suspect]
     Active Substance: ATENOLOL
     Indication: HEART RATE IRREGULAR
     Route: 048
  17. ATACAND [Suspect]
     Active Substance: CANDESARTAN CILEXETIL
     Indication: BLOOD PRESSURE ABNORMAL
     Route: 048
  18. HYDRALAZINE [Suspect]
     Active Substance: HYDRALAZINE HYDROCHLORIDE
     Route: 042
  19. MATRIX 5000 [Concomitant]
     Indication: DERMATITIS
     Dosage: ONCE A DAY

REACTIONS (24)
  - Chest pain [Recovered/Resolved]
  - Heart rate increased [Recovered/Resolved]
  - Dizziness [Recovered/Resolved]
  - Stress [Unknown]
  - Palpitations [Unknown]
  - Loss of consciousness [Recovered/Resolved]
  - Dyspnoea [Recovered/Resolved]
  - Fatigue [Recovered/Resolved]
  - Hypertension [Recovered/Resolved]
  - Nausea [Unknown]
  - Cough [Recovered/Resolved]
  - Erythema [Unknown]
  - Arrhythmia [Unknown]
  - Pruritus [Recovered/Resolved]
  - Migraine [Recovered/Resolved]
  - Tinnitus [Recovered/Resolved]
  - Anxiety [Unknown]
  - Vomiting [Unknown]
  - Intentional product misuse [Unknown]
  - Blood pressure increased [Not Recovered/Not Resolved]
  - Peripheral coldness [Recovered/Resolved]
  - Drug intolerance [Unknown]
  - Pollakiuria [Recovered/Resolved]
  - Drug ineffective [Unknown]

NARRATIVE: CASE EVENT DATE: 201502
